FAERS Safety Report 25235416 (Version 1)
Quarter: 2025Q2

REPORT INFORMATION
  Report Type: Spontaneous
  Country: CA (occurrence: CA)
  Receive Date: 20250424
  Receipt Date: 20250424
  Transmission Date: 20250717
  Serious: Yes (Other)
  Sender: GRIFOLS
  Company Number: CA-IGSA-BIG0034564

PATIENT
  Age: 79 Year
  Sex: Female
  Weight: 77 kg

DRUGS (8)
  1. ALBUMIN (HUMAN) [Suspect]
     Active Substance: ALBUMIN HUMAN
     Indication: Surgery
     Route: 042
  2. DEXTROSE [Concomitant]
     Active Substance: DEXTROSE MONOHYDRATE
     Route: 042
  3. PHENYLEPHRINE [Concomitant]
     Active Substance: PHENYLEPHRINE
  4. PIPERACILLIN AND TAZOBACTAM [Concomitant]
     Active Substance: PIPERACILLIN SODIUM\TAZOBACTAM SODIUM
  5. PROPOFOL [Concomitant]
     Active Substance: PROPOFOL
  6. PROPRANOLOL [Concomitant]
     Active Substance: PROPRANOLOL HYDROCHLORIDE
  7. ROCURONIUM [Concomitant]
     Active Substance: ROCURONIUM BROMIDE
  8. TYLENOL [Concomitant]
     Active Substance: ACETAMINOPHEN

REACTIONS (12)
  - Abscess bacterial [Recovered/Resolved]
  - Allergic transfusion reaction [Recovered/Resolved]
  - Atelectasis [Recovered/Resolved]
  - Candida test positive [Recovered/Resolved]
  - Corynebacterium test positive [Recovered/Resolved]
  - Hypotension [Recovered/Resolved]
  - Hypoxia [Recovered/Resolved]
  - Lung consolidation [Recovered/Resolved]
  - Pleural effusion [Recovered/Resolved]
  - Pulmonary oedema [Recovered/Resolved]
  - Staphylococcus test positive [Recovered/Resolved]
  - Tachycardia [Recovered/Resolved]
